FAERS Safety Report 6024132-X (Version None)
Quarter: 2008Q4

REPORT INFORMATION
  Report Type: 
  Country: None (occurrence: None)
  Receive Date: 20081224
  Receipt Date: 20081217
  Transmission Date: 20090506
  Serious: Yes (Hospitalization, Other)
  Sender: FDA-Public Use
  Company Number: PAR_02480_2008

PATIENT
  Age: 44 Year
  Sex: Female

DRUGS (11)
  1. ONDANSETRON [Suspect]
     Indication: DRUG USE FOR UNKNOWN INDICATION
     Dosage: DF, DF
  2. ONDANSETRON [Suspect]
     Indication: DRUG USE FOR UNKNOWN INDICATION
     Dosage: 4 MG 1X INTRAVENOUS (NOT OTHERWISE SPECIFIED)
     Route: 042
  3. GEMFIBROZIL [Concomitant]
  4. ASPIRIN [Concomitant]
  5. CLOPIDOGREL [Concomitant]
  6. DULOXETINE [Concomitant]
  7. OMEPRAZOLE [Concomitant]
  8. MORPHINE [Concomitant]
  9. HEPARIN [Concomitant]
  10. MAGNESIUM HYDROXIDE TAB [Concomitant]
  11. NITROGLYCERIN [Concomitant]

REACTIONS (5)
  - ALANINE AMINOTRANSFERASE INCREASED [None]
  - ASPARTATE AMINOTRANSFERASE INCREASED [None]
  - BLOOD CHOLESTEROL INCREASED [None]
  - BLOOD TRIGLYCERIDES INCREASED [None]
  - LIVER DISORDER [None]
